FAERS Safety Report 16157525 (Version 1)
Quarter: 2019Q2

REPORT INFORMATION
  Report Type: Spontaneous
  Country: US (occurrence: US)
  Receive Date: 20190228
  Receipt Date: 20190228
  Transmission Date: 20190711
  Serious: Yes (Life-Threatening, Hospitalization, Disabling, Other)
  Sender: FDA-Public Use
  Company Number: None

PATIENT
  Age: 5 Year
  Sex: Male

DRUGS (39)
  1. METHOTREXATE. [Suspect]
     Active Substance: METHOTREXATE
     Route: 037
     Dates: start: 20190122, end: 20190219
  2. MEROPENEM. [Concomitant]
     Active Substance: MEROPENEM
  3. VECURONIUM [Concomitant]
     Active Substance: VECURONIUM BROMIDE
  4. METHOTREXATE/HYROCORTISONE/CYTARABINE [Concomitant]
  5. MARQIBO [Suspect]
     Active Substance: VINCRISTINE SULFATE
     Route: 042
     Dates: start: 20190122, end: 20190228
  6. ALBUMIN [Concomitant]
     Active Substance: ALBUMIN HUMAN
  7. GABAPENTIN. [Concomitant]
     Active Substance: GABAPENTIN
  8. MICAFUNGIN. [Concomitant]
     Active Substance: MICAFUNGIN SODIUM
  9. PANTOPRAZOLE [Concomitant]
     Active Substance: PANTOPRAZOLE
  10. VORICONAZOLE. [Concomitant]
     Active Substance: VORICONAZOLE
  11. ROCURONIUM [Concomitant]
     Active Substance: ROCURONIUM BROMIDE
  12. ACETAMINOPHEN. [Concomitant]
     Active Substance: ACETAMINOPHEN
  13. PROCARDIA [Concomitant]
     Active Substance: NIFEDIPINE
  14. DEXAMETHASONE. [Suspect]
     Active Substance: DEXAMETHASONE
     Route: 048
     Dates: start: 20190122, end: 20190228
  15. ACETAZOLOMIDE [Concomitant]
  16. LEUCOVORIN. [Concomitant]
     Active Substance: LEUCOVORIN
  17. DEXMEDETOMIDINE. [Concomitant]
     Active Substance: DEXMEDETOMIDINE
  18. HYDRALAZINE [Concomitant]
     Active Substance: HYDRALAZINE HYDROCHLORIDE
  19. PROSTIGMIN [Concomitant]
     Active Substance: NEOSTIGMINE BROMIDE
  20. CEFTAROLINE [Concomitant]
     Active Substance: CEFTAROLINE
  21. KETAMINE [Concomitant]
     Active Substance: KETAMINE
  22. METHYLPREDNISOLONE. [Concomitant]
     Active Substance: METHYLPREDNISOLONE
  23. VERSED [Concomitant]
     Active Substance: MIDAZOLAM HYDROCHLORIDE
  24. AMPHOTERICIN B LIPOSOME [Concomitant]
     Active Substance: AMPHOTERICIN B
  25. MITOXANTRONE [Suspect]
     Active Substance: MITOXANTRONE HYDROCHLORIDE
     Route: 042
     Dates: start: 20190122, end: 20190219
  26. APRESOLINE HYDROCHLORIDE [Concomitant]
     Active Substance: HYDRALAZINE HYDROCHLORIDE
  27. MORPHINE [Concomitant]
     Active Substance: MORPHINE
  28. ZYPREXA [Concomitant]
     Active Substance: OLANZAPINE
  29. KEPPRA [Concomitant]
     Active Substance: LEVETIRACETAM
  30. DIPRIVAN [Concomitant]
     Active Substance: PROPOFOL
  31. IBUPROFEN. [Concomitant]
     Active Substance: IBUPROFEN
  32. ACYCLOVIR. [Concomitant]
     Active Substance: ACYCLOVIR
  33. ATIVAN [Concomitant]
     Active Substance: LORAZEPAM
  34. FENTANYL. [Concomitant]
     Active Substance: FENTANYL
  35. FUROSEMIDE. [Concomitant]
     Active Substance: FUROSEMIDE
  36. MILRINONE [Concomitant]
     Active Substance: MILRINONE
  37. NEURONTIN [Concomitant]
     Active Substance: GABAPENTIN
  38. POTASSIUM CHLORIDE. [Concomitant]
     Active Substance: POTASSIUM CHLORIDE
  39. LINEZOLID. [Concomitant]
     Active Substance: LINEZOLID

REACTIONS (7)
  - Abdominal distension [None]
  - Condition aggravated [None]
  - Cerebral artery stenosis [None]
  - Post procedural complication [None]
  - Cerebral hypoperfusion [None]
  - Ejection fraction decreased [None]
  - Delayed recovery from anaesthesia [None]

NARRATIVE: CASE EVENT DATE: 20190219
